FAERS Safety Report 9292432 (Version 1)
Quarter: 2013Q2

REPORT INFORMATION
  Report Type: Spontaneous
  Country: US (occurrence: US)
  Receive Date: 20130516
  Receipt Date: 20130516
  Transmission Date: 20140414
  Serious: Yes (Other)
  Sender: FDA-Public Use
  Company Number: US-BAYER-2013-052742

PATIENT
  Age: 87 Year
  Sex: Female
  Weight: 53.98 kg

DRUGS (3)
  1. XARELTO [Suspect]
     Indication: CEREBROVASCULAR ACCIDENT PROPHYLAXIS
     Dosage: 20 MG, QD
     Route: 048
     Dates: start: 20130321, end: 20130328
  2. XARELTO [Interacting]
     Indication: ATRIAL FIBRILLATION
  3. NAPROXEN SODIUM ({= 220 MG) [Interacting]
     Indication: PRODUCT USED FOR UNKNOWN INDICATION
     Dosage: 220 MG, UNK
     Route: 065

REACTIONS (2)
  - Epistaxis [Recovering/Resolving]
  - Inappropriate schedule of drug administration [Unknown]
